FAERS Safety Report 24852900 (Version 2)
Quarter: 2025Q1

REPORT INFORMATION
  Report Type: Report from Study
  Country: US (occurrence: US)
  Receive Date: 20250116
  Receipt Date: 20250310
  Transmission Date: 20250408
  Serious: Yes (Other)
  Sender: ABBVIE
  Company Number: US-ABBVIE-6086860

PATIENT

DRUGS (1)
  1. ELAGOLIX [Suspect]
     Active Substance: ELAGOLIX
     Indication: Maternal exposure timing unspecified
     Route: 064

REACTIONS (8)
  - Premature baby [Unknown]
  - Small for dates baby [Unknown]
  - Respiratory distress [Unknown]
  - Hypernatraemia [Unknown]
  - Nutritional supplementation [Unknown]
  - Anaemia neonatal [Unknown]
  - Lung disorder [Unknown]
  - Foetal exposure during pregnancy [Unknown]

NARRATIVE: CASE EVENT DATE: 20240812
